FAERS Safety Report 16211222 (Version 2)
Quarter: 2019Q2

REPORT INFORMATION
  Report Type: Spontaneous
  Country: US (occurrence: US)
  Receive Date: 20190418
  Receipt Date: 20190610
  Transmission Date: 20190711
  Serious: No
  Sender: FDA-Public Use
  Company Number: US-GLAXOSMITHKLINE-US2019069233

PATIENT
  Sex: Male

DRUGS (2)
  1. BREO ELLIPTA [Suspect]
     Active Substance: FLUTICASONE FUROATE\VILANTEROL TRIFENATATE
     Indication: BRONCHITIS CHRONIC
     Dosage: 1 PUFF(S), 1D
     Route: 055
     Dates: start: 2018
  2. ALBUTEROL. [Suspect]
     Active Substance: ALBUTEROL
     Indication: PRODUCT USED FOR UNKNOWN INDICATION
     Dosage: 1 DF, BID

REACTIONS (2)
  - Dyspnoea [Recovered/Resolved]
  - Product complaint [Unknown]
